FAERS Safety Report 4557826-3 (Version None)
Quarter: 2005Q1

REPORT INFORMATION
  Report Type: 
  Country: None (occurrence: None)
  Receive Date: 20050121
  Receipt Date: 20041223
  Transmission Date: 20050727
  Serious: Yes (Life-Threatening, Hospitalization, Other)
  Sender: FDA-Public Use
  Company Number: BG-NOVOPROD-241328

PATIENT
  Age: 0 Day
  Sex: Male
  Weight: 4 kg

DRUGS (9)
  1. NOVORAPID PENFILL 3.0 ML [Suspect]
     Indication: DIABETES MELLITUS INSULIN-DEPENDENT
     Dosage: 42 IU, QD
     Route: 015
     Dates: start: 20040604
  2. PROTAPHAN PENFILL [Concomitant]
     Indication: DIABETES MELLITUS INSULIN-DEPENDENT
     Dosage: 16 IU, QD
     Route: 015
     Dates: start: 20040604
  3. NYSTATIN [Concomitant]
     Dosage: 30000 IU, QD
     Route: 048
     Dates: start: 20041230, end: 20050105
  4. MEZYM FORTE [Concomitant]
     Dosage: 8000 IU, QD
     Route: 048
     Dates: start: 20050104, end: 20050105
  5. VITAMIN C [Concomitant]
     Dosage: 1 ML, QD
     Route: 048
     Dates: start: 20050104, end: 20050105
  6. VITAMIN B6 [Concomitant]
     Dosage: .3 ML, QD
     Route: 048
     Dates: start: 20050104, end: 20050105
  7. VITAMIN A+E [Concomitant]
     Dosage: 1 ML, QD
     Route: 048
     Dates: start: 20050104, end: 20050105
  8. CLAFORAN [Concomitant]
     Dosage: 450 MG, QD
     Route: 042
     Dates: start: 20041229, end: 20050103
  9. DARTELIN [Concomitant]
     Dosage: 8 ML, QD
     Route: 048
     Dates: start: 20050105, end: 20050105

REACTIONS (1)
  - NEONATAL RESPIRATORY DISTRESS SYNDROME [None]
